FAERS Safety Report 5722763-5 (Version None)
Quarter: 2008Q2

REPORT INFORMATION
  Report Type: 
  Country: None (occurrence: None)
  Receive Date: 20080429
  Receipt Date: 20080115
  Transmission Date: 20081010
  Serious: No
  Sender: FDA-Public Use
  Company Number: US-ASTRAZENECA-2008UW01096

PATIENT
  Age: 65 Year
  Sex: Female

DRUGS (4)
  1. NEXIUM [Suspect]
     Route: 048
     Dates: start: 20070701, end: 20071101
  2. NEXIUM [Suspect]
     Route: 048
     Dates: start: 20071101
  3. CIPRO [Concomitant]
  4. ARTHRITIS MEDICATION [Concomitant]

REACTIONS (3)
  - CYSTITIS [None]
  - LARYNGEAL INFLAMMATION [None]
  - LARYNGITIS [None]
